FAERS Safety Report 8611864 (Version 3)
Quarter: 2013Q4

REPORT INFORMATION
  Report Type: Spontaneous
  Country: US (occurrence: US)
  Receive Date: 20120613
  Receipt Date: 20131129
  Transmission Date: 20140711
  Serious: Yes (Hospitalization, Disabling, Other)
  Sender: FDA-Public Use
  Company Number: US-ASTRAZENECA-2012SE35783

PATIENT
  Age: 42 Year
  Sex: Female
  Weight: 57.6 kg

DRUGS (13)
  1. NEXIUM [Suspect]
     Indication: GASTROOESOPHAGEAL REFLUX DISEASE
     Dosage: ONCE
     Route: 048
  2. NEXIUM [Suspect]
     Indication: GASTROOESOPHAGEAL REFLUX DISEASE
     Route: 048
     Dates: start: 20050301
  3. TUMS [Concomitant]
  4. PREMARIN [Concomitant]
  5. INTERFERON [Concomitant]
     Dates: start: 2001
  6. METHADONE [Concomitant]
     Dates: start: 20050120
  7. CYCLOBENZAPR [Concomitant]
     Dates: start: 20050203
  8. LEVOTHROID [Concomitant]
     Dates: start: 20050204
  9. DIFLUCAN [Concomitant]
     Dates: start: 20050408
  10. ALLOPURINOL [Concomitant]
  11. SERTRALINE [Concomitant]
  12. ZOLPIDEM [Concomitant]
  13. LIPITOR [Concomitant]

REACTIONS (19)
  - Femur fracture [Unknown]
  - Disability [Unknown]
  - Knee deformity [Unknown]
  - Hepatitis C [Unknown]
  - Neuropathy peripheral [Unknown]
  - Back disorder [Unknown]
  - Neck deformity [Unknown]
  - Cataract [Unknown]
  - Abdominal hernia [Unknown]
  - Lower limb fracture [Unknown]
  - Arthropathy [Unknown]
  - Osteoporosis [Unknown]
  - Multiple fractures [Unknown]
  - Fibula fracture [Unknown]
  - Tibia fracture [Unknown]
  - Arthritis [Unknown]
  - Cardiovascular disorder [Unknown]
  - Liver disorder [Unknown]
  - Chronic obstructive pulmonary disease [Unknown]
